FAERS Safety Report 25402157 (Version 2)
Quarter: 2025Q2

REPORT INFORMATION
  Report Type: Spontaneous
  Country: JP (occurrence: JP)
  Receive Date: 20250605
  Receipt Date: 20250609
  Transmission Date: 20250717
  Serious: Yes (Other)
  Sender: PFIZER
  Company Number: JP-PFIZER INC-PV202500066889

PATIENT
  Age: 4 Decade
  Sex: Female

DRUGS (4)
  1. PREMARIN [Suspect]
     Active Substance: ESTROGENS, CONJUGATED
     Indication: Hormone replacement therapy
     Route: 048
  2. PREMARIN [Suspect]
     Active Substance: ESTROGENS, CONJUGATED
     Indication: Premature menopause
  3. DUPHASTON [Concomitant]
     Active Substance: DYDROGESTERONE
     Indication: Hormone replacement therapy
  4. DUPHASTON [Concomitant]
     Active Substance: DYDROGESTERONE
     Indication: Premature menopause

REACTIONS (1)
  - Osteonecrosis [Unknown]
